FAERS Safety Report 6786955-9 (Version None)
Quarter: 2010Q2

REPORT INFORMATION
  Report Type: 
  Country: None (occurrence: None)
  Receive Date: 20100621
  Receipt Date: 20100608
  Transmission Date: 20101027
  Serious: Yes (Other)
  Sender: FDA-Public Use
  Company Number: 230234J10GBR

PATIENT
  Sex: Female

DRUGS (3)
  1. REBIF [Suspect]
     Dosage: 44 MCG, 3 IN 1 WK, SUBCUTANEOUS
     Route: 058
     Dates: start: 20051101, end: 20061230
  2. REBIF [Suspect]
     Dosage: 44 MCG, 3 IN 1 WK, SUBCUTANEOUS
     Route: 058
     Dates: start: 20080804
  3. REBIF [Suspect]
     Dosage: 44 MCG, 3 IN 1 WK, SUBCUTANEOUS
     Route: 058
     Dates: start: 20100101

REACTIONS (8)
  - ABDOMINAL PAIN UPPER [None]
  - BACK PAIN [None]
  - DIABETES MELLITUS [None]
  - HEADACHE [None]
  - HEPATIC ENZYME INCREASED [None]
  - INFLUENZA LIKE ILLNESS [None]
  - INJECTION SITE REACTION [None]
  - WEIGHT DECREASED [None]
